FAERS Safety Report 10088610 (Version 1)
Quarter: 2014Q2

REPORT INFORMATION
  Report Type: Spontaneous
  Country: US (occurrence: US)
  Receive Date: 20140421
  Receipt Date: 20140421
  Transmission Date: 20141212
  Serious: No
  Sender: FDA-Public Use
  Company Number: US-BIOGENIDEC-2014BI032460

PATIENT
  Age: 67 Year
  Sex: Female

DRUGS (8)
  1. TECFIDERA [Suspect]
     Indication: MULTIPLE SCLEROSIS
     Route: 048
     Dates: start: 20140319
  2. ALENDRONATE SODIUM [Concomitant]
  3. ASPIRIN LOW DOSE [Concomitant]
  4. ATENOLOL [Concomitant]
  5. LISINOPRIL [Concomitant]
  6. OXYBUTYNIN CHLORIDE [Concomitant]
  7. VENLAFAXINE HCL [Concomitant]
  8. VITAMIN D [Concomitant]

REACTIONS (1)
  - Cough [Unknown]
